FAERS Safety Report 23388034 (Version 1)
Quarter: 2024Q1

REPORT INFORMATION
  Report Type: Spontaneous
  Country: CN (occurrence: CN)
  Receive Date: 20240110
  Receipt Date: 20240110
  Transmission Date: 20240410
  Serious: Yes (Hospitalization, Other)
  Sender: FDA-Public Use
  Company Number: CN-PFIZER INC-PV202400002049

PATIENT
  Age: 53 Year
  Sex: Male
  Weight: 75 kg

DRUGS (3)
  1. IBRANCE [Suspect]
     Active Substance: PALBOCICLIB
     Indication: Therapeutic procedure
     Dosage: 100 MG, 1X/DAY
     Route: 048
     Dates: start: 20231120, end: 20231210
  2. CISPLATIN [Suspect]
     Active Substance: CISPLATIN
     Indication: Therapeutic procedure
     Dosage: 100 MG, 1X/DAY
     Route: 041
     Dates: start: 20231117, end: 20231117
  3. DOXORUBICIN HYDROCHLORIDE [Suspect]
     Active Substance: DOXORUBICIN HYDROCHLORIDE
     Indication: Therapeutic procedure
     Dosage: 20 MG, 1X/DAY
     Route: 041
     Dates: start: 20231117, end: 20231117

REACTIONS (1)
  - Myelosuppression [Recovering/Resolving]

NARRATIVE: CASE EVENT DATE: 20231210
